FAERS Safety Report 9031671 (Version 1)
Quarter: 2013Q1

REPORT INFORMATION
  Report Type: Spontaneous
  Country: US (occurrence: US)
  Receive Date: 20130124
  Receipt Date: 20130124
  Transmission Date: 20140127
  Serious: Yes (Other)
  Sender: FDA-Public Use
  Company Number: PHEH2013US001467

PATIENT
  Sex: Female

DRUGS (8)
  1. DIOVAN HCT [Suspect]
     Indication: BLOOD PRESSURE ABNORMAL
     Dosage: 1 DF (160 MG VALS AND 12.5 MG HCTZ), QD
     Route: 048
  2. MONTELUKAST SODIUM [Suspect]
     Dosage: 10 MG, QD
  3. LYRICA [Suspect]
     Indication: ARTHRITIS
     Dosage: 50 MG, QD
  4. CYMBALTA [Suspect]
     Indication: ARTHRITIS
     Dosage: 30 MG, QD
  5. METOPROLOL [Concomitant]
     Indication: ASTHMA
     Dosage: 200 MG, QD
  6. CRESTOR [Concomitant]
     Dosage: 20 MG, UNK
  7. CELEBREX [Concomitant]
     Dosage: 200 MG, QD
  8. LEVOTHYROXINE [Concomitant]
     Dosage: 25 UG, QD

REACTIONS (3)
  - Fibromyalgia [Unknown]
  - Arthralgia [Unknown]
  - Diarrhoea [Unknown]
